FAERS Safety Report 21474761 (Version 1)
Quarter: 2022Q4

REPORT INFORMATION
  Report Type: Report from Study
  Country: FR (occurrence: None)
  Receive Date: 20221018
  Receipt Date: 20221018
  Transmission Date: 20230112
  Serious: Yes (Hospitalization)
  Sender: FDA-Public Use
  Company Number: FR-ROCHE-3115198

PATIENT
  Age: 81 Year
  Sex: Male

DRUGS (4)
  1. ATEZOLIZUMAB [Suspect]
     Active Substance: ATEZOLIZUMAB
     Indication: Non-small cell lung cancer
     Dosage: DATE OF LAST ADMINISTRATION OF STUDY TREATMENT: 19/APR/2022
     Route: 065
     Dates: start: 20200805
  2. CARBOPLATIN [Suspect]
     Active Substance: CARBOPLATIN
     Indication: Non-small cell lung cancer
     Dosage: AUC 6 EVERY 4 WEEKS?DATE OF LAST ADMINISTRATION OF STUDY TREATMENT: 19/APR/2022
     Route: 065
     Dates: start: 20200805
  3. PACLITAXEL [Suspect]
     Active Substance: PACLITAXEL
     Indication: Non-small cell lung cancer
     Dosage: DATE OF LAST ADMINISTRATION OF STUDY TREATMENT 19/APR/2022?D1, 8, 15, EVERY 4 WEEKS
     Route: 065
     Dates: start: 20200805
  4. CIPROFLOXACIN [Concomitant]
     Active Substance: CIPROFLOXACIN
     Dates: start: 20220411, end: 20220502

REACTIONS (1)
  - Lung disorder [Recovered/Resolved]

NARRATIVE: CASE EVENT DATE: 20220510
